FAERS Safety Report 10082966 (Version 1)
Quarter: 2014Q2

REPORT INFORMATION
  Report Type: Spontaneous
  Country: CN (occurrence: CN)
  Receive Date: 20140417
  Receipt Date: 20140417
  Transmission Date: 20141212
  Serious: Yes (Death, Other)
  Sender: FDA-Public Use
  Company Number: CN-PFIZER INC-2014107190

PATIENT
  Age: 68 Year
  Sex: Male

DRUGS (7)
  1. CORDARONE [Suspect]
     Dosage: 200 MG, DAILY
     Route: 048
     Dates: start: 20130309, end: 20130319
  2. ZOCOR [Concomitant]
     Dosage: UNK
     Dates: start: 20130419
  3. LIPITOR [Concomitant]
     Dosage: UNK
  4. ALLOPURINOL [Concomitant]
     Dosage: UNK
  5. BETALOC [Concomitant]
     Dosage: UNK
  6. FUROSEMIDE [Concomitant]
     Dosage: UNK
  7. DIGOXIN [Concomitant]
     Dosage: UNK

REACTIONS (6)
  - Rhabdomyolysis [Fatal]
  - Transaminases increased [Fatal]
  - Blood potassium increased [Fatal]
  - Blood creatinine increased [Unknown]
  - Oliguria [Unknown]
  - Hypotension [Unknown]
